FAERS Safety Report 23290766 (Version 2)
Quarter: 2023Q4

REPORT INFORMATION
  Report Type: Other
  Country: US (occurrence: None)
  Receive Date: 20231213
  Receipt Date: 20231219
  Transmission Date: 20240110
  Serious: Yes (Hospitalization)
  Sender: FDA-Public Use
  Company Number: US-ROCHE-3473772

PATIENT
  Age: 61 Year
  Sex: Female

DRUGS (1)
  1. OCREVUS [Suspect]
     Active Substance: OCRELIZUMAB
     Indication: Relapsing multiple sclerosis
     Dosage: MOST RECENT INFUSION: 22/MAY/2023
     Route: 065
     Dates: start: 20190425

REACTIONS (3)
  - Fall [Unknown]
  - Hip fracture [Unknown]
  - Urinary tract infection [Unknown]
